FAERS Safety Report 9669314 (Version 2)
Quarter: 2013Q4

REPORT INFORMATION
  Report Type: Spontaneous
  Country: JP (occurrence: None)
  Receive Date: 20131101
  Receipt Date: 20131113
  Transmission Date: 20140711
  Serious: Yes (Other)
  Sender: FDA-Public Use
  Company Number: ADR-2013-01981

PATIENT
  Sex: Male

DRUGS (2)
  1. GABALON [Suspect]
     Route: 037
  2. CRESTOR [Concomitant]

REACTIONS (3)
  - Muscle spasticity [None]
  - Sepsis [None]
  - Condition aggravated [None]
